FAERS Safety Report 21021152 (Version 1)
Quarter: 2022Q2

REPORT INFORMATION
  Report Type: Report from Study
  Country: US (occurrence: US)
  Receive Date: 20220629
  Receipt Date: 20220629
  Transmission Date: 20220720
  Serious: No
  Sender: FDA-Public Use
  Company Number: US-BIOVITRUM-2021US12955

PATIENT
  Age: 45 Year
  Sex: Female

DRUGS (2)
  1. KINERET [Suspect]
     Active Substance: ANAKINRA
     Indication: Still^s disease
     Route: 058
     Dates: start: 202103
  2. KINERET [Suspect]
     Active Substance: ANAKINRA
     Route: 058
     Dates: start: 20211210

REACTIONS (15)
  - Contusion [Unknown]
  - Laboratory test abnormal [Recovering/Resolving]
  - Alopecia [Unknown]
  - Arthralgia [Unknown]
  - Neck pain [Unknown]
  - Energy increased [Unknown]
  - Hyperaesthesia teeth [Unknown]
  - COVID-19 [Unknown]
  - Fatigue [Unknown]
  - Blister [Unknown]
  - Insomnia [Unknown]
  - Emotional disorder [Unknown]
  - Pruritus [Unknown]
  - Product dose omission issue [Unknown]
  - Off label use [Unknown]

NARRATIVE: CASE EVENT DATE: 20211210
